FAERS Safety Report 24176339 (Version 1)
Quarter: 2024Q3

REPORT INFORMATION
  Report Type: Spontaneous
  Country: GB (occurrence: GB)
  Receive Date: 20240806
  Receipt Date: 20240806
  Transmission Date: 20241017
  Serious: Yes (Other)
  Sender: NOVO NORDISK
  Company Number: None

PATIENT
  Age: 49 Year
  Sex: Female

DRUGS (1)
  1. RYBELSUS [Suspect]
     Active Substance: SEMAGLUTIDE
     Indication: Diabetes mellitus
     Dosage: 7 MG, QD(7 MG IN THE MORNNG)
     Dates: end: 20240719

REACTIONS (11)
  - Muscle spasms [Recovering/Resolving]
  - Hunger [Recovered/Resolved]
  - Somnolence [Recovered/Resolved]
  - Menstruation irregular [Not Recovered/Not Resolved]
  - Swelling [Not Recovered/Not Resolved]
  - Back pain [Recovered/Resolved]
  - Constipation [Recovered/Resolved]
  - Diarrhoea [Recovering/Resolving]
  - Fatigue [Recovering/Resolving]
  - Abdominal pain upper [Recovered/Resolved]
  - Abdominal distension [Recovered/Resolved]

NARRATIVE: CASE EVENT DATE: 20240501
